FAERS Safety Report 10919141 (Version 1)
Quarter: 2015Q1

REPORT INFORMATION
  Report Type: Spontaneous
  Country: GB (occurrence: GB)
  Receive Date: 20150316
  Receipt Date: 20150316
  Transmission Date: 20150721
  Serious: Yes (Other)
  Sender: FDA-Public Use
  Company Number: GB-TEVA-546705ACC

PATIENT
  Age: 25 Year
  Sex: Female
  Weight: 76.2 kg

DRUGS (3)
  1. TRIMETHOPRIM. [Concomitant]
     Active Substance: TRIMETHOPRIM
  2. SERTRALINE [Concomitant]
     Active Substance: SERTRALINE HYDROCHLORIDE
  3. METOCLOPRAMIDE HYDROCHLORIDE. [Suspect]
     Active Substance: METOCLOPRAMIDE HYDROCHLORIDE
     Indication: MALAISE
     Dosage: 30 MILLIGRAM DAILY;
     Route: 048
     Dates: start: 20150223, end: 20150227

REACTIONS (7)
  - Dry mouth [Unknown]
  - Anxiety [Unknown]
  - Irritability [Unknown]
  - Insomnia [Unknown]
  - Muscle spasms [Unknown]
  - Tremor [Unknown]
  - Restlessness [Unknown]

NARRATIVE: CASE EVENT DATE: 20150224
